FAERS Safety Report 8343927 (Version 10)
Quarter: 2013Q4

REPORT INFORMATION
  Report Type: Report from Study
  Country: US (occurrence: US)
  Receive Date: 20120111
  Receipt Date: 20131105
  Transmission Date: 20140711
  Serious: Yes (Hospitalization, Other)
  Sender: FDA-Public Use
  Company Number: US-MERCK-2011SP040438

PATIENT
  Age: 55 Year
  Sex: Female

DRUGS (15)
  1. PEG-INTRON [Suspect]
     Indication: HEPATITIS C
     Dosage: UNK UNK, UNKNOWN
     Route: 065
     Dates: start: 20080104, end: 20081003
  2. PEG-INTRON [Suspect]
     Dosage: UNK UNK, UNKNOWN
     Route: 065
     Dates: end: 20091007
  3. PEG-INTRON [Suspect]
     Dosage: UNK UNK, UNKNOWN
     Route: 065
     Dates: start: 20110817, end: 20120403
  4. PEG-INTRON [Suspect]
     Dosage: 0.4 ?G, UNKNOWN
     Route: 065
  5. PEG-INTRON [Suspect]
     Dosage: 0.3 ?G, UNKNOWN
     Route: 065
  6. MK-8908 [Suspect]
     Indication: HEPATITIS C
     Dosage: UNK UNK, UNKNOWN
     Route: 065
     Dates: start: 20080104, end: 20081003
  7. MK-8908 [Suspect]
     Dosage: UNK UNK, UNKNOWN
     Route: 065
     Dates: end: 20091007
  8. MK-8908 [Suspect]
     Dosage: UNK UNK, QD
     Route: 065
     Dates: start: 20110817, end: 20120403
  9. MK-8908 [Suspect]
     Dosage: UNK UNK, QD
     Route: 065
  10. MK-8908 [Suspect]
     Route: 065
  11. MK-8908 [Suspect]
     Dosage: 200 MG, QD
     Route: 065
  12. VICTRELIS [Suspect]
     Indication: HEPATITIS C
     Dosage: 800 MG, TID
     Route: 048
     Dates: start: 20110914
  13. VICTRELIS [Suspect]
     Dosage: 800 MG, TID
     Route: 048
     Dates: start: 20110914
  14. VICTRELIS [Suspect]
     Dosage: 800 MG, TID
     Route: 048
     Dates: start: 20110914
  15. EPOETIN ALFA [Concomitant]
     Indication: PRODUCT USED FOR UNKNOWN INDICATION
     Dosage: UPDATE (07NOV2011)
     Route: 065

REACTIONS (16)
  - Epistaxis [Recovered/Resolved]
  - Diabetes mellitus [Unknown]
  - Hypotension [Unknown]
  - Red blood cell count decreased [Unknown]
  - Anaemia [Unknown]
  - Lethargy [Unknown]
  - Dysgeusia [Unknown]
  - White blood cell count decreased [Unknown]
  - Asthenia [Not Recovered/Not Resolved]
  - Therapeutic product ineffective [Unknown]
  - Rash [Unknown]
  - Weight decreased [Unknown]
  - Fatigue [Unknown]
  - Nausea [Unknown]
  - Headache [Unknown]
  - Dyspnoea [Unknown]
